FAERS Safety Report 8534146-3 (Version None)
Quarter: 2012Q3

REPORT INFORMATION
  Report Type: 
  Country: None (occurrence: None)
  Receive Date: 20120724
  Receipt Date: 20120719
  Transmission Date: 20120928
  Serious: Yes (Death)
  Sender: FDA-Public Use
  Company Number: CN-ASTRAZENECA-2012SE51460

PATIENT
  Age: 18 Year
  Sex: Female
  Weight: 50 kg

DRUGS (13)
  1. SEROQUEL [Suspect]
     Route: 048
  2. OMEPRAZOLE [Concomitant]
  3. HALOPERIDOL [Concomitant]
  4. CARBAMAZEPINE [Concomitant]
  5. L-SCOPOLAMINE [Concomitant]
  6. SEROQUEL [Suspect]
     Route: 048
  7. SEROQUEL [Suspect]
     Route: 048
  8. FAMOTIDINE [Concomitant]
  9. CARBAMAZEPINE [Concomitant]
  10. PERPHENAZINE [Concomitant]
  11. INOSINE [Concomitant]
  12. ANIRACETAM [Concomitant]
  13. CLONAZEPAM [Concomitant]

REACTIONS (1)
  - DEATH [None]
